FAERS Safety Report 13563009 (Version 1)
Quarter: 2017Q2

REPORT INFORMATION
  Report Type: Spontaneous
  Country: US (occurrence: US)
  Receive Date: 20170518
  Receipt Date: 20170518
  Transmission Date: 20170830
  Serious: Yes (Life-Threatening, Hospitalization)
  Sender: FDA-Public Use
  Company Number: None

PATIENT
  Age: 69 Year
  Sex: Male
  Weight: 125.78 kg

DRUGS (2)
  1. KETOROLAC TROMETHAMINE. [Suspect]
     Active Substance: KETOROLAC TROMETHAMINE
     Indication: FLANK PAIN
     Route: 042
     Dates: start: 20170507, end: 20170507
  2. WARFARIN [Suspect]
     Active Substance: WARFARIN
     Indication: ATRIAL FIBRILLATION
     Dosage: 10 AND 15 MG EVERY DAY PO
     Route: 048
     Dates: start: 20160210, end: 20170512

REACTIONS (8)
  - Hyperkalaemia [None]
  - Acute kidney injury [None]
  - Drug interaction [None]
  - Dehydration [None]
  - Haemorrhage [None]
  - Retroperitoneal haemorrhage [None]
  - Anticoagulation drug level above therapeutic [None]
  - Anaemia [None]

NARRATIVE: CASE EVENT DATE: 20170508
